FAERS Safety Report 14240964 (Version 3)
Quarter: 2019Q3

REPORT INFORMATION
  Report Type: Spontaneous
  Country: US (occurrence: US)
  Receive Date: 20171130
  Receipt Date: 20190919
  Transmission Date: 20191004
  Serious: Yes (Hospitalization)
  Sender: FDA-Public Use
  Company Number: US-ACTELION-A-NJ2017-163405

PATIENT
  Age: 56 Year
  Sex: Male

DRUGS (14)
  1. OPSUMIT [Suspect]
     Active Substance: MACITENTAN
     Indication: PULMONARY ARTERIAL HYPERTENSION
     Dosage: 10 MG, QD
     Route: 048
     Dates: start: 20171129
  2. SIMVASTATIN. [Concomitant]
     Active Substance: SIMVASTATIN
  3. NOVOLOG [Concomitant]
     Active Substance: INSULIN ASPART
  4. POTASSIUM [Concomitant]
     Active Substance: POTASSIUM
  5. SPIRONOLACTONE. [Concomitant]
     Active Substance: SPIRONOLACTONE
  6. PREDNISOLONE. [Concomitant]
     Active Substance: PREDNISOLONE
  7. ALBUTEROL. [Concomitant]
     Active Substance: ALBUTEROL
  8. COLACE [Concomitant]
     Active Substance: DOCUSATE SODIUM
  9. DILTIAZEM. [Concomitant]
     Active Substance: DILTIAZEM
  10. ELIQUIS [Concomitant]
     Active Substance: APIXABAN
  11. OXYGEN. [Concomitant]
     Active Substance: OXYGEN
     Dosage: UNK, PRN
  12. SILDENAFIL. [Concomitant]
     Active Substance: SILDENAFIL
  13. LANTUS [Concomitant]
     Active Substance: INSULIN GLARGINE
  14. METFORMIN [Concomitant]
     Active Substance: METFORMIN HYDROCHLORIDE

REACTIONS (4)
  - Product dose omission [Unknown]
  - Treatment noncompliance [Unknown]
  - Pneumonia [Recovered/Resolved]
  - Dyspnoea [Unknown]

NARRATIVE: CASE EVENT DATE: 201711
